FAERS Safety Report 9521786 (Version 3)
Quarter: 2013Q4

REPORT INFORMATION
  Report Type: Spontaneous
  Country: DE (occurrence: DE)
  Receive Date: 20130913
  Receipt Date: 20131011
  Transmission Date: 20140711
  Serious: No
  Sender: FDA-Public Use
  Company Number: PHHY2013DE083844

PATIENT
  Sex: Female

DRUGS (4)
  1. EXELON PATCH [Suspect]
     Indication: DEMENTIA ALZHEIMER^S TYPE
     Dosage: 4.6 MG, PER 24 HOURS
     Route: 062
     Dates: start: 201307, end: 201308
  2. EXELON PATCH [Suspect]
     Dosage: 9.5 MG, PER 24 HOURS
     Route: 062
     Dates: start: 201308
  3. CARBAMAZEPINE [Concomitant]
     Indication: EPILEPSY
     Dosage: 900 MG, DAILY
  4. TOPAMAX [Concomitant]
     Indication: EPILEPSY
     Dosage: UNK UKN, UNK

REACTIONS (6)
  - Dizziness [Recovering/Resolving]
  - Dementia [Not Recovered/Not Resolved]
  - Nausea [Recovered/Resolved]
  - Vomiting [Recovered/Resolved]
  - Application site erythema [Recovered/Resolved]
  - Application site reaction [Unknown]
